FAERS Safety Report 8836679 (Version 1)
Quarter: 2012Q4

REPORT INFORMATION
  Report Type: Spontaneous
  Country: CN (occurrence: None)
  Receive Date: 20121009
  Receipt Date: 20121009
  Transmission Date: 20130627
  Serious: Yes (Other)
  Sender: FDA-Public Use
  Company Number: FK201202855

PATIENT
  Age: 24 Year
  Sex: Female

DRUGS (6)
  1. METHYLPREDNISOLONE [Suspect]
     Indication: PRODUCT USED FOR UNKNOWN INDICATION
  2. NEOSTIGMINE (NEOSTIGMINE) [Concomitant]
  3. OCTROTIDE (OCTREOTIDE) [Concomitant]
  4. IMMUNOGLOBULIN (IMMUNOGLOBULIN) [Concomitant]
  5. TPN(TPN) [Concomitant]
  6. CYCLOPHOSPHAMIDE(CYCLOPHOSPHAMIDE) [Concomitant]

REACTIONS (8)
  - Gastrointestinal hypomotility [None]
  - Hydronephrosis [None]
  - Ocular icterus [None]
  - Blood bilirubin increased [None]
  - Bilirubin conjugated increased [None]
  - Ascites [None]
  - Biliary dilatation [None]
  - Systemic lupus erythematosus [None]
